FAERS Safety Report 21260689 (Version 1)
Quarter: 2022Q3

REPORT INFORMATION
  Report Type: Spontaneous
  Country: US (occurrence: US)
  Receive Date: 20220826
  Receipt Date: 20220826
  Transmission Date: 20221027
  Serious: Yes (Hospitalization, Other)
  Sender: FDA-Public Use
  Company Number: US-TAKEDA-2022TUS059115

PATIENT
  Age: 52 Year
  Sex: Male

DRUGS (9)
  1. PRUCALOPRIDE [Suspect]
     Active Substance: PRUCALOPRIDE
     Indication: Irritable bowel syndrome
     Dosage: 2 MILLIGRAM, QD
     Route: 065
     Dates: start: 202108
  2. ESCITALOPRAM [Suspect]
     Active Substance: ESCITALOPRAM OXALATE
     Indication: Depression
     Dosage: 10 MILLIGRAM, QD
     Route: 065
     Dates: start: 2005, end: 2006
  3. ESCITALOPRAM [Suspect]
     Active Substance: ESCITALOPRAM OXALATE
     Dosage: 10 MILLIGRAM, QD
     Route: 065
     Dates: start: 202103
  4. CANNABIS SATIVA SUBSP. INDICA TOP [Suspect]
     Active Substance: CANNABIS SATIVA SUBSP. INDICA TOP
     Indication: Irritable bowel syndrome
     Dosage: UNK, Q2WEEKS
     Route: 065
  5. DICYCLOMINE [Concomitant]
     Active Substance: DICYCLOMINE HYDROCHLORIDE
     Indication: Irritable bowel syndrome
     Dosage: 20 MILLIGRAM, TID
  6. TAMSULOSIN [Concomitant]
     Active Substance: TAMSULOSIN
     Indication: Benign prostatic hyperplasia
     Dosage: 0.4 MILLIGRAM, QD
  7. OLANZAPINE [Concomitant]
     Active Substance: OLANZAPINE
     Dosage: 5 MILLIGRAM, QD
  8. CLONAZEPAM [Concomitant]
     Active Substance: CLONAZEPAM
     Indication: Insomnia
     Dosage: 1 MILLIGRAM, QD
  9. LITHIUM [Concomitant]
     Active Substance: LITHIUM
     Dosage: 600 MILLIGRAM, BID

REACTIONS (3)
  - Mania [Recovering/Resolving]
  - Inhibitory drug interaction [Unknown]
  - Off label use [Unknown]
